FAERS Safety Report 20797229 (Version 1)
Quarter: 2022Q2

REPORT INFORMATION
  Report Type: Report from Study
  Country: FR (occurrence: None)
  Receive Date: 20220506
  Receipt Date: 20220506
  Transmission Date: 20220721
  Serious: Yes (Other)
  Sender: FDA-Public Use
  Company Number: 2022A167950

PATIENT
  Age: 821 Month
  Sex: Male
  Weight: 88 kg

DRUGS (7)
  1. DURVALUMAB [Suspect]
     Active Substance: DURVALUMAB
     Indication: Bladder cancer
     Dosage: 1500.0MG ONCE/SINGLE ADMINISTRATION
     Route: 042
     Dates: start: 20220329, end: 20220329
  2. TREMELIMUMAB [Suspect]
     Active Substance: TREMELIMUMAB
     Indication: Bladder cancer
     Dosage: 76.0MG ONCE/SINGLE ADMINISTRATION
     Route: 042
     Dates: start: 20220329, end: 20220329
  3. CISPLATIN [Suspect]
     Active Substance: CISPLATIN
     Indication: Bladder cancer
     Dosage: 143.0MG ONCE/SINGLE ADMINISTRATION
     Route: 042
     Dates: start: 20220329, end: 20220329
  4. ADRIAMYCIN [Suspect]
     Active Substance: DOXORUBICIN HYDROCHLORIDE
     Indication: Bladder cancer
     Dosage: 62.0MG ONCE/SINGLE ADMINISTRATION
     Route: 042
     Dates: start: 20220329, end: 20220329
  5. METHOTREXATE [Suspect]
     Active Substance: METHOTREXATE
     Indication: Bladder cancer
     Dosage: 61.0MG ONCE/SINGLE ADMINISTRATION
     Route: 042
     Dates: start: 20220329, end: 20220329
  6. VINBLASTINE SULFATE [Suspect]
     Active Substance: VINBLASTINE SULFATE
     Indication: Bladder cancer
     Dosage: 6.2MG ONCE/SINGLE ADMINISTRATION
     Route: 042
     Dates: start: 20220329, end: 20220329
  7. QVAR [Concomitant]
     Active Substance: BECLOMETHASONE DIPROPIONATE
     Indication: Asthma
     Route: 055

REACTIONS (1)
  - Troponin increased [Recovered/Resolved]

NARRATIVE: CASE EVENT DATE: 20220408
